FAERS Safety Report 8433493 (Version 4)
Quarter: 2012Q4

REPORT INFORMATION
  Report Type: Report from Study
  Country: US (occurrence: US)
  Receive Date: 20120229
  Receipt Date: 20121121
  Transmission Date: 20130627
  Serious: Yes (Hospitalization)
  Sender: FDA-Public Use
  Company Number: US-JNJFOC-20120212972

PATIENT
  Age: 14 Year
  Sex: Female
  Weight: 46.9 kg

DRUGS (4)
  1. REMICADE [Suspect]
     Indication: CROHN^S DISEASE
     Route: 042
     Dates: end: 2009
  2. REMICADE [Suspect]
     Indication: CROHN^S DISEASE
     Route: 042
     Dates: start: 20100202, end: 20100612
  3. ADALIMUMAB [Concomitant]
     Dates: start: 20110502
  4. ADALIMUMAB [Concomitant]
     Dates: start: 20110825

REACTIONS (1)
  - Crohn^s disease [Recovered/Resolved]
